FAERS Safety Report 8894143 (Version 1)
Quarter: 2012Q4

REPORT INFORMATION
  Report Type: 
  Country: US (occurrence: US)
  Receive Date: 20121107
  Receipt Date: 20121107
  Transmission Date: 20130627
  Serious: No
  Sender: FDA-Public Use
  Company Number: US-AMGEN-USASP2011055784

PATIENT
  Age: 64 Year

DRUGS (6)
  1. ENBREL [Suspect]
     Indication: PRODUCT USED FOR UNKNOWN INDICATION
     Dosage: 50 mg, qwk
     Route: 058
  2. METHOTREXATE [Concomitant]
     Dosage: 2.5 mg, UNK
  3. PREDNISONE [Concomitant]
     Dosage: 1 mg, UNK
  4. FOLIC ACID [Concomitant]
     Dosage: 1 mg, UNK
  5. PRILOSEC                           /00661201/ [Concomitant]
     Dosage: 10 mg, UNK
  6. MULTIPLE VITAMINS [Concomitant]
     Dosage: UNK mg, UNK

REACTIONS (2)
  - Sinusitis [Unknown]
  - Pyrexia [Unknown]
